FAERS Safety Report 22218199 (Version 1)
Quarter: 2023Q2

REPORT INFORMATION
  Report Type: Spontaneous
  Country: JP (occurrence: JP)
  Receive Date: 20230417
  Receipt Date: 20230417
  Transmission Date: 20230722
  Serious: Yes (Other)
  Sender: FDA-Public Use
  Company Number: JP-002147023-NVSJ2022JP276962

PATIENT
  Sex: Female
  Weight: 13 kg

DRUGS (4)
  1. CYCLOSPORINE [Suspect]
     Active Substance: CYCLOSPORINE
     Indication: Kawasaki^s disease
     Dosage: 3 MG/KG/DAY
     Route: 042
     Dates: start: 20160126, end: 20160127
  2. CYCLOSPORINE [Suspect]
     Active Substance: CYCLOSPORINE
     Dosage: 2.4 MG/KG/DAY
     Route: 042
     Dates: start: 20160127, end: 20160129
  3. CYCLOSPORINE [Suspect]
     Active Substance: CYCLOSPORINE
     Dosage: 1.8 MG/KG/DAY
     Route: 042
     Dates: start: 20160129, end: 20160201
  4. ASPIRIN [Concomitant]
     Active Substance: ASPIRIN
     Indication: Kawasaki^s disease
     Dosage: 130 MG, TID
     Route: 048
     Dates: start: 20160126, end: 20160201

REACTIONS (2)
  - Hypertension [Recovered/Resolved]
  - Off label use [Unknown]
